FAERS Safety Report 6638480-3 (Version None)
Quarter: 2010Q1

REPORT INFORMATION
  Report Type: 
  Country: None (occurrence: None)
  Receive Date: 20100317
  Receipt Date: 20100311
  Transmission Date: 20100710
  Serious: Yes (Death)
  Sender: FDA-Public Use
  Company Number: ES-MERCK-1003ESP00032

PATIENT
  Age: 53 Year
  Sex: Male

DRUGS (2)
  1. INVANZ [Suspect]
     Indication: DIVERTICULITIS
     Route: 042
     Dates: start: 20100301, end: 20100301
  2. PIPERACILLIN SODIUM AND TAZOBACTAM SODIUM [Concomitant]
     Indication: DIVERTICULITIS
     Route: 042
     Dates: start: 20100301, end: 20100307

REACTIONS (2)
  - DRUG INEFFECTIVE [None]
  - SEPTIC SHOCK [None]
